FAERS Safety Report 9485107 (Version 1)
Quarter: 2013Q3

REPORT INFORMATION
  Report Type: Spontaneous
  Country: US (occurrence: US)
  Receive Date: 20130828
  Receipt Date: 20130828
  Transmission Date: 20140515
  Serious: No
  Sender: FDA-Public Use
  Company Number: US-ABBOTT-13P-163-1110893-00

PATIENT
  Age: 60 Year
  Sex: Male
  Weight: 83.99 kg

DRUGS (7)
  1. ANDROGEL [Suspect]
     Indication: BLOOD TESTOSTERONE DECREASED
     Dosage: ONE PUMP/DAY
     Dates: start: 201304
  2. TRILEPTAL [Concomitant]
     Indication: PRODUCT USED FOR UNKNOWN INDICATION
  3. ZONERGAN [Concomitant]
     Indication: PRODUCT USED FOR UNKNOWN INDICATION
  4. KLONOPIN [Concomitant]
     Indication: MUSCLE SPASMS
  5. SZ FREE [Concomitant]
     Indication: PRODUCT USED FOR UNKNOWN INDICATION
  6. LITTLE BLUE OR BROWN PILLS [Concomitant]
     Indication: PRODUCT USED FOR UNKNOWN INDICATION
  7. TRI INJECTION [Concomitant]
     Indication: PRODUCT USED FOR UNKNOWN INDICATION

REACTIONS (1)
  - Drug ineffective [Not Recovered/Not Resolved]
